FAERS Safety Report 6535385-3 (Version None)
Quarter: 2010Q1

REPORT INFORMATION
  Report Type: 
  Country: None (occurrence: None)
  Receive Date: 20100105
  Receipt Date: 20091221
  Transmission Date: 20100710
  Serious: Yes (Hospitalization, Other)
  Sender: FDA-Public Use
  Company Number: 2009003911

PATIENT
  Age: 72 Year
  Sex: Female

DRUGS (9)
  1. ERLOTINIB HYDROCHLORIDE [Suspect]
     Indication: NON-SMALL CELL LUNG CANCER
     Dosage: (150 MG), ORAL
     Route: 048
     Dates: start: 20090130
  2. CARBOPLATIN [Suspect]
     Indication: NON-SMALL CELL LUNG CANCER
     Dosage: (526 MG, 1X PER 3 WEEKS), INTRAVENOUS
     Route: 042
     Dates: start: 20090422
  3. PACLITAXEL [Suspect]
     Indication: NON-SMALL CELL LUNG CANCER
     Dosage: (350 MG, 1X PER 3 WEEKS), INTRAVENOUS
     Route: 042
     Dates: start: 20090422
  4. SYNTHROID [Concomitant]
  5. NEXIUM (ESOMPRAZOLE) [Concomitant]
  6. AMITRIPTYLINE HYDROCHLORIDE [Concomitant]
  7. MULTI-VITAMIN [Concomitant]
  8. VERAPAMIL [Concomitant]
  9. VITAMIN B12 [Concomitant]

REACTIONS (3)
  - ARTHRALGIA [None]
  - FEBRILE NEUTROPENIA [None]
  - PAIN [None]
